FAERS Safety Report 4354077-2 (Version None)
Quarter: 2004Q2

REPORT INFORMATION
  Report Type: 
  Country: None (occurrence: None)
  Receive Date: 20040503
  Receipt Date: 20040420
  Transmission Date: 20050107
  Serious: Yes (Hospitalization)
  Sender: FDA-Public Use
  Company Number: 2004210330GB

PATIENT
  Age: 17 Year
  Sex: Male
  Weight: 68.4 kg

DRUGS (24)
  1. CYTARABINE [Suspect]
     Dosage: 140 MG, CYCLIC, IV DRIP
     Route: 041
     Dates: start: 20040123, end: 20040324
  2. SODIUM CHLORIDE [Suspect]
     Dosage: 100 ML, IV DRIP
     Route: 041
  3. VINCRISTINE [Concomitant]
  4. GRANISETRON (GRANISETRON) [Concomitant]
  5. DEXAMETHASONE [Concomitant]
  6. ETOPOSIDE [Concomitant]
  7. METOCLOPRAMIDE [Concomitant]
  8. DAUNORUBICIN HCL [Concomitant]
  9. TIOGUANINE (TIOGUANINE) [Concomitant]
  10. ACCICLOVIR [Concomitant]
  11. CIPROFLOXACIN [Concomitant]
  12. ACETAMINOPHEN [Concomitant]
  13. CALCICHEW [Concomitant]
  14. FLUCONAZOLE [Concomitant]
  15. TAZOCIN(TAZOBACTAM SODIUM) [Concomitant]
  16. GENTAMICIN [Concomitant]
  17. NMEROPENEM (MEROPENEM) [Concomitant]
  18. AMIKACIN [Concomitant]
  19. LANSOPRAZOLE [Concomitant]
  20. TEICOPLANIN [Concomitant]
  21. AMPHOTERICIN B [Concomitant]
  22. AMILORIDE [Concomitant]
  23. SANDOCAL (CALCIUAM GLUBIONATE) [Concomitant]
  24. SANDO K [Concomitant]

REACTIONS (6)
  - CHEST PAIN [None]
  - DYSPNOEA [None]
  - HYPERHIDROSIS [None]
  - HYPOTENSION [None]
  - SYNCOPE VASOVAGAL [None]
  - TACHYCARDIA [None]
